FAERS Safety Report 6656773-0 (Version None)
Quarter: 2010Q1

REPORT INFORMATION
  Report Type: 
  Country: None (occurrence: None)
  Receive Date: 20100329
  Receipt Date: 20091125
  Transmission Date: 20100710
  Serious: Yes (Hospitalization, Other)
  Sender: FDA-Public Use
  Company Number: PHHY2009TW61037

PATIENT

DRUGS (1)
  1. EXJADE [Suspect]

REACTIONS (4)
  - CAROTID ARTERY STENOSIS [None]
  - DIARRHOEA [None]
  - FALL [None]
  - ORTHOSTATIC HYPOTENSION [None]
